FAERS Safety Report 8414278-0 (Version None)
Quarter: 2012Q2

REPORT INFORMATION
  Report Type: 
  Country: None (occurrence: None)
  Receive Date: 20120605
  Receipt Date: 20120523
  Transmission Date: 20120825
  Serious: Yes (Death, Life-Threatening, Congenital Anomaly, Other)
  Sender: FDA-Public Use
  Company Number: DE-MYLANLABS-2012S1010505

PATIENT
  Age: 0 Year
  Sex: Male
  Weight: 2.87 kg

DRUGS (4)
  1. FOLIC ACID [Concomitant]
     Dosage: 0.4 [MG/D ]
     Route: 064
  2. METFORMIN HCL [Suspect]
     Dosage: 1500 [MG/D ]/ 1500 MG/D UNTIL GW 18, AFTERWARDS 1000 MG/D
     Route: 064
     Dates: start: 20091015, end: 20100629
  3. METHYLDOPA [Suspect]
     Route: 064
  4. PRESINOL [Concomitant]
     Dosage: 1500 [MG/D ]
     Route: 064
     Dates: end: 20100629

REACTIONS (8)
  - CEREBRAL HAEMORRHAGE FOETAL [None]
  - FEEDING DISORDER NEONATAL [None]
  - HYPOSPADIAS [None]
  - HYPOXIC-ISCHAEMIC ENCEPHALOPATHY [None]
  - MATERNAL EXPOSURE DURING PREGNANCY [None]
  - NEONATAL RESPIRATORY DISTRESS SYNDROME [None]
  - CONGENITAL THROMBOCYTE DISORDER [None]
  - MACROCEPHALY [None]
